FAERS Safety Report 26209046 (Version 1)
Quarter: 2025Q4

REPORT INFORMATION
  Report Type: Spontaneous
  Country: AU (occurrence: AU)
  Receive Date: 20251229
  Receipt Date: 20251229
  Transmission Date: 20260117
  Serious: Yes (Other)
  Sender: LUPIN
  Company Number: AU-GENERIC HEALTH PTY. LTD.-2025-11781

PATIENT
  Age: 24 Year
  Sex: Male

DRUGS (1)
  1. CEPHALEXIN [Suspect]
     Active Substance: CEPHALEXIN
     Indication: Product used for unknown indication
     Dosage: UNK
     Route: 061

REACTIONS (2)
  - Acute generalised exanthematous pustulosis [Unknown]
  - Condition aggravated [Unknown]
